FAERS Safety Report 6993550-5 (Version None)
Quarter: 2010Q3

REPORT INFORMATION
  Report Type: 
  Country: None (occurrence: None)
  Receive Date: 20100917
  Receipt Date: 20100104
  Transmission Date: 20110219
  Serious: No
  Sender: FDA-Public Use
  Company Number: US-ASTRAZENECA-2009SE28800

PATIENT
  Age: 45 Year
  Sex: Female
  Weight: 128.4 kg

DRUGS (6)
  1. SEROQUEL [Suspect]
     Indication: BIPOLAR DISORDER
     Dosage: 100-200 MG
     Route: 048
     Dates: start: 20020601, end: 20070401
  2. SEROQUEL [Suspect]
     Indication: SLEEP DISORDER
     Dosage: 100-200 MG
     Route: 048
     Dates: start: 20020601, end: 20070401
  3. GEODON [Concomitant]
     Dates: start: 20010701, end: 20020501
  4. RISPERDAL [Concomitant]
     Dates: start: 20050101, end: 20070101
  5. LITHIUM CARBONATE [Concomitant]
     Dates: start: 20060201, end: 20070701
  6. LITHIUM CARBONATE [Concomitant]
     Dates: start: 20080801

REACTIONS (7)
  - BLOOD CHOLESTEROL INCREASED [None]
  - BLOOD TRIGLYCERIDES INCREASED [None]
  - HYPERLIPIDAEMIA [None]
  - OBESITY [None]
  - OSTEOARTHRITIS [None]
  - TYPE 2 DIABETES MELLITUS [None]
  - WEIGHT INCREASED [None]
